FAERS Safety Report 15576360 (Version 1)
Quarter: 2018Q4

REPORT INFORMATION
  Report Type: Spontaneous
  Country: GB (occurrence: GB)
  Receive Date: 20181101
  Receipt Date: 20181101
  Transmission Date: 20190205
  Serious: Yes (Other)
  Sender: FDA-Public Use
  Company Number: PHHY2018GB070840

PATIENT
  Age: 4 Year
  Sex: Male
  Weight: 20.3 kg

DRUGS (8)
  1. VOTUBIA [Suspect]
     Active Substance: EVEROLIMUS
     Indication: SEIZURE
     Dosage: 5 MG, UNK
     Route: 048
     Dates: start: 20180212
  2. LACOSAMIDE. [Concomitant]
     Active Substance: LACOSAMIDE
     Indication: EPILEPSY
     Dosage: 300 MG, BID
     Route: 048
     Dates: start: 20061124
  3. VITAMIN D3 [Concomitant]
     Active Substance: CHOLECALCIFEROL
     Indication: VITAMIN D DECREASED
     Dosage: 25000 UG, UNK (EVERY 6 WEEKS)
     Route: 048
     Dates: start: 20171212
  4. VOTUBIA [Suspect]
     Active Substance: EVEROLIMUS
     Dosage: 6 UNK, UNK
     Route: 048
     Dates: start: 20180705
  5. RUFINAMIDE [Concomitant]
     Active Substance: RUFINAMIDE
     Indication: EPILEPSY
     Dosage: 300 MG, BID
     Dates: start: 20160304
  6. MIDAZOLAM [Concomitant]
     Active Substance: MIDAZOLAM HYDROCHLORIDE
     Indication: SEIZURE
     Dosage: UNK
     Route: 048
     Dates: start: 20180214
  7. MIDAZOLAM [Concomitant]
     Active Substance: MIDAZOLAM HYDROCHLORIDE
     Indication: EPILEPSY
     Dosage: 10 MG, PRN
     Route: 002
     Dates: start: 20180219
  8. VOTUBIA [Suspect]
     Active Substance: EVEROLIMUS
     Indication: EPILEPSY
     Dosage: 5 MG, UNK
     Route: 048
     Dates: start: 20180212

REACTIONS (18)
  - Mouth ulceration [Recovered/Resolved]
  - Seizure [Recovered/Resolved]
  - Blood alkaline phosphatase increased [Recovered/Resolved]
  - Seizure [Recovering/Resolving]
  - Mouth ulceration [Recovered/Resolved]
  - Mouth ulceration [Recovering/Resolving]
  - Rhinorrhoea [Recovered/Resolved]
  - Sneezing [Unknown]
  - Blood chloride increased [Unknown]
  - Urine protein/creatinine ratio increased [Unknown]
  - Alanine aminotransferase increased [Unknown]
  - Nasopharyngitis [Recovered/Resolved]
  - Blood test abnormal [Unknown]
  - Protein urine present [Recovered/Resolved]
  - Nasopharyngitis [Recovered/Resolved]
  - Cough [Unknown]
  - Seizure [Recovered/Resolved]
  - Blister [Recovered/Resolved]

NARRATIVE: CASE EVENT DATE: 20180226
